FAERS Safety Report 11763100 (Version 1)
Quarter: 2015Q4

REPORT INFORMATION
  Report Type: Spontaneous
  Country: US (occurrence: US)
  Receive Date: 20151120
  Receipt Date: 20151120
  Transmission Date: 20160304
  Serious: No
  Sender: FDA-Public Use
  Company Number: US-ELI_LILLY_AND_COMPANY-US201302009667

PATIENT
  Age: 73 Year
  Sex: Female

DRUGS (2)
  1. FORTEO [Suspect]
     Active Substance: TERIPARATIDE
     Indication: OSTEOPOROSIS
     Dosage: 20 UG, QD
     Dates: start: 20130224
  2. BYETTA [Concomitant]
     Active Substance: EXENATIDE

REACTIONS (9)
  - Muscular weakness [Unknown]
  - Sinusitis [Unknown]
  - Dizziness [Unknown]
  - Blood glucose increased [Unknown]
  - Arthralgia [Unknown]
  - Palpitations [Unknown]
  - Bone pain [Unknown]
  - Asthenia [Unknown]
  - Muscle spasms [Unknown]

NARRATIVE: CASE EVENT DATE: 20130225
